FAERS Safety Report 5614200-6 (Version None)
Quarter: 2008Q1

REPORT INFORMATION
  Report Type: 
  Country: None (occurrence: None)
  Receive Date: 20080205
  Receipt Date: 20080129
  Transmission Date: 20080703
  Serious: Yes (Death, Other)
  Sender: FDA-Public Use
  Company Number: KR-BRISTOL-MYERS SQUIBB COMPANY-14064695

PATIENT
  Age: 61 Year
  Sex: Male

DRUGS (2)
  1. HYDREA [Suspect]
     Indication: ESSENTIAL THROMBOCYTHAEMIA
     Dosage: 1 DOSAGE FORM = 500-1500 MG/DAY
     Route: 048
     Dates: start: 20010301
  2. ANAGRELIDE HCL [Suspect]
     Indication: ESSENTIAL THROMBOCYTHAEMIA

REACTIONS (3)
  - ACUTE MEGAKARYOCYTIC LEUKAEMIA [None]
  - DEATH [None]
  - RENAL FAILURE [None]
